FAERS Safety Report 15904874 (Version 1)
Quarter: 2019Q1

REPORT INFORMATION
  Report Type: Spontaneous
  Country: ES (occurrence: ES)
  Receive Date: 20190204
  Receipt Date: 20190204
  Transmission Date: 20190417
  Serious: Yes (Other)
  Sender: FDA-Public Use
  Company Number: ES-SA-2019SA027822

PATIENT
  Age: 65 Year
  Sex: Female

DRUGS (10)
  1. CEREZYME [Suspect]
     Active Substance: IMIGLUCERASE
     Dosage: 30 IU/KG, UNK
     Route: 041
     Dates: start: 201607, end: 201707
  2. CEREZYME [Suspect]
     Active Substance: IMIGLUCERASE
     Dosage: 40 IU/KG, UNK
     Route: 041
     Dates: start: 2010, end: 2012
  3. IMATINIB SALT NOT SPECIFIED [Suspect]
     Active Substance: IMATINIB
     Dosage: 400, UNK
     Route: 065
     Dates: start: 201601
  4. CEREZYME [Suspect]
     Active Substance: IMIGLUCERASE
     Dosage: 40 IU/KG, UNK
     Route: 041
     Dates: start: 2007, end: 2008
  5. CEREZYME [Suspect]
     Active Substance: IMIGLUCERASE
     Indication: GAUCHER^S DISEASE TYPE I
     Dosage: 35 IU/KG, UNK
     Route: 041
     Dates: start: 2013, end: 201607
  6. CEREZYME [Suspect]
     Active Substance: IMIGLUCERASE
     Dosage: 40 IU/KG, UNK
     Route: 041
     Dates: start: 201707
  7. IMATINIB SALT NOT SPECIFIED [Suspect]
     Active Substance: IMATINIB
     Dosage: 200, UNK
     Route: 065
     Dates: start: 201510
  8. MIGLUSTAT. [Suspect]
     Active Substance: MIGLUSTAT
     Dosage: UNK UNK, UNK
     Route: 065
     Dates: start: 2009
  9. CEREZYME [Suspect]
     Active Substance: IMIGLUCERASE
     Dosage: 60 IU/KG, UNK
     Route: 041
     Dates: start: 2006
  10. IMATINIB SALT NOT SPECIFIED [Suspect]
     Active Substance: IMATINIB
     Indication: CHRONIC MYELOID LEUKAEMIA
     Dosage: 400 UNK, UNK
     Route: 065
     Dates: start: 201507

REACTIONS (14)
  - Leukocytosis [Not Recovered/Not Resolved]
  - Aspartate aminotransferase increased [Not Recovered/Not Resolved]
  - Blood test abnormal [Recovered/Resolved]
  - Chronic myeloid leukaemia [Not Recovered/Not Resolved]
  - Gamma-glutamyltransferase increased [Not Recovered/Not Resolved]
  - Thrombocytopenia [Unknown]
  - Alanine aminotransferase increased [Not Recovered/Not Resolved]
  - Basophilia [Not Recovered/Not Resolved]
  - Blood lactate dehydrogenase increased [Not Recovered/Not Resolved]
  - Gene mutation [Unknown]
  - Myelocytosis [Not Recovered/Not Resolved]
  - Cholecystectomy [Unknown]
  - Bone density increased [Recovered/Resolved]
  - Bone pain [Recovered/Resolved]

NARRATIVE: CASE EVENT DATE: 2009
